FAERS Safety Report 8710817 (Version 2)
Quarter: 2012Q4

REPORT INFORMATION
  Report Type: 
  Country: CA (occurrence: CA)
  Receive Date: 20120807
  Receipt Date: 20121009
  Transmission Date: 20130627
  Serious: Yes (Hospitalization, Other)
  Sender: FDA-Public Use
  Company Number: CA-ELI_LILLY_AND_COMPANY-CA201208000845

PATIENT
  Age: 76 Year
  Sex: Female

DRUGS (8)
  1. FORTEO [Suspect]
     Indication: OSTEOPOROSIS
     Dosage: 20 ug, qd
     Route: 058
     Dates: start: 20110221
  2. LIPITOR [Concomitant]
     Dosage: UNK, unknown
     Route: 065
  3. ATACAND [Concomitant]
     Dosage: UNK, unknown
     Route: 065
  4. CALCIUM [Concomitant]
     Dosage: UNK, unknown
     Route: 065
  5. PANTOLOC                           /01263204/ [Concomitant]
     Dosage: UNK, unknown
     Route: 065
  6. TIAZAC                             /00489702/ [Concomitant]
     Dosage: UNK, unknown
     Route: 065
  7. ATIVAN [Concomitant]
     Dosage: UNK, unknown
     Route: 065
  8. DOMPERIDONE [Concomitant]
     Dosage: UNK, unknown
     Route: 065

REACTIONS (1)
  - Breast cancer recurrent [Recovered/Resolved]
